FAERS Safety Report 10921661 (Version 2)
Quarter: 2015Q1

REPORT INFORMATION
  Report Type: Spontaneous
  Country: ES (occurrence: None)
  Receive Date: 20150312
  Receipt Date: 20150312
  Transmission Date: 20150721
  Serious: Yes (Hospitalization, Other)
  Sender: FDA-Public Use
  Company Number: 2269673

PATIENT
  Age: 64 Year
  Sex: Male

DRUGS (8)
  1. RALTITREXED DISODIUM [Suspect]
     Active Substance: RALTITREXED
     Indication: ADENOCARCINOMA OF COLON
     Dosage: CYCLICAL
  2. CAPECITABINE. [Suspect]
     Active Substance: CAPECITABINE
     Indication: ADENOCARCINOMA OF COLON
     Dosage: CYCLICAL
     Dates: start: 20121218
  3. INDAPAMIDE. [Concomitant]
     Active Substance: INDAPAMIDE
  4. AMLODIPINE [Concomitant]
     Active Substance: AMLODIPINE BESYLATE
  5. OXALIPLATIN. [Suspect]
     Active Substance: OXALIPLATIN
     Indication: ADENOCARCINOMA OF COLON
     Dosage: CYCLICAL
     Dates: start: 20121218
  6. ATORVASTATIN [Concomitant]
     Active Substance: ATORVASTATIN
  7. CIPROFLOXACIN. [Suspect]
     Active Substance: CIPROFLOXACIN
     Indication: PYREXIA
  8. CANDESARTAN [Concomitant]
     Active Substance: CANDESARTAN

REACTIONS (9)
  - Hypersensitivity vasculitis [None]
  - Hepatotoxicity [None]
  - Neurotoxicity [None]
  - Asthenia [None]
  - Diarrhoea [None]
  - Skin disorder [None]
  - Pyrexia [None]
  - Anaemia [None]
  - Nasopharyngitis [None]
